FAERS Safety Report 7438491-4 (Version None)
Quarter: 2011Q2

REPORT INFORMATION
  Report Type: 
  Country: None (occurrence: None)
  Receive Date: 20110426
  Receipt Date: 20110425
  Transmission Date: 20111010
  Serious: Yes (Other)
  Sender: FDA-Public Use
  Company Number: ES-PFIZER INC-2011088363

PATIENT
  Age: 75 Year
  Sex: Male

DRUGS (6)
  1. DIAMICRON [Concomitant]
     Indication: DIABETES MELLITUS
     Dosage: 40 MG, 1X/DAY
     Route: 048
     Dates: start: 20081001
  2. DIAZEPAM [Concomitant]
     Dosage: 5 MG, 1X/DAY
     Route: 048
  3. ENALAPRIL MALEATE [Interacting]
     Indication: HYPERTENSION
     Dosage: 20 MG, 1X/DAY
     Route: 048
     Dates: start: 20081125, end: 20081201
  4. AMLODIPINE BESILATE [Interacting]
     Indication: HYPERTENSION
     Dosage: 5 MG, 1X/DAY
     Route: 048
     Dates: start: 20050101
  5. SIMVASTATIN [Concomitant]
     Indication: DYSLIPIDAEMIA
     Dosage: UNK
     Route: 048
     Dates: start: 20081001
  6. CARDURA [Suspect]
     Indication: HYPERTENSION
     Dosage: 4 MG, 1X/DAY
     Route: 048

REACTIONS (7)
  - DRUG INTERACTION [None]
  - VOMITING [None]
  - HYPERKALAEMIA [None]
  - NAUSEA [None]
  - RENAL FAILURE ACUTE [None]
  - MALAISE [None]
  - BLOOD PRESSURE ABNORMAL [None]
